FAERS Safety Report 20440979 (Version 1)
Quarter: 2022Q1

REPORT INFORMATION
  Report Type: Spontaneous
  Country: US (occurrence: US)
  Receive Date: 20220208
  Receipt Date: 20220208
  Transmission Date: 20220423
  Serious: Yes (Hospitalization, Other)
  Sender: FDA-Public Use
  Company Number: US-SUN PHARMACEUTICAL INDUSTRIES LTD-2022R1-324920

PATIENT
  Sex: Female

DRUGS (2)
  1. KETOROLAC [Suspect]
     Active Substance: KETOROLAC TROMETHAMINE
     Indication: Duodenitis
     Dosage: UNK
     Route: 030
  2. DICYCLOMINE [Concomitant]
     Active Substance: DICYCLOMINE HYDROCHLORIDE
     Indication: Duodenitis
     Dosage: UNK
     Route: 030

REACTIONS (2)
  - Acute respiratory failure [Unknown]
  - Aspirin-exacerbated respiratory disease [Unknown]
